FAERS Safety Report 4325650-2 (Version None)
Quarter: 2004Q1

REPORT INFORMATION
  Report Type: 
  Country: None (occurrence: None)
  Receive Date: 20040324
  Receipt Date: 20040315
  Transmission Date: 20041129
  Serious: Yes (Other)
  Sender: FDA-Public Use
  Company Number: 2004-03-0937

PATIENT
  Age: 29 Year
  Sex: Female

DRUGS (2)
  1. INTRON A [Suspect]
     Indication: MALIGNANT MELANOMA
     Dosage: 15 MIU TIW
     Dates: start: 20030121, end: 20040119
  2. ANAFRANIL [Concomitant]

REACTIONS (3)
  - BRAIN NEOPLASM [None]
  - BRAIN OEDEMA [None]
  - CONVULSION [None]
